FAERS Safety Report 4768094-1 (Version None)
Quarter: 2005Q3

REPORT INFORMATION
  Report Type: 
  Country: None (occurrence: None)
  Receive Date: 20050908
  Receipt Date: 20050908
  Transmission Date: 20060218
  Serious: Yes (Other)
  Sender: FDA-Public Use
  Company Number: None

PATIENT
  Age: 57 Year
  Sex: Male

DRUGS (1)
  1. GATIFLOXACIN [Suspect]
     Indication: INFECTION PROPHYLAXIS
     Dosage: 400 MG DAILY
     Dates: start: 20050815, end: 20050816

REACTIONS (3)
  - COORDINATION ABNORMAL [None]
  - HALLUCINATION [None]
  - PSYCHOTIC DISORDER [None]
